FAERS Safety Report 6511053-9 (Version None)
Quarter: 2009Q4

REPORT INFORMATION
  Report Type: 
  Country: None (occurrence: None)
  Receive Date: 20091222
  Receipt Date: 20090219
  Transmission Date: 20100525
  Serious: No
  Sender: FDA-Public Use
  Company Number: US-ASTRAZENECA-2009UW04688

PATIENT
  Age: 58 Year
  Sex: Female

DRUGS (5)
  1. CRESTOR [Suspect]
     Indication: BLOOD CHOLESTEROL INCREASED
     Route: 048
     Dates: start: 20090212
  2. DIOVAN [Concomitant]
  3. NEXIUM [Concomitant]
     Route: 048
  4. CARDIZEM [Concomitant]
  5. TRILIPIX [Concomitant]

REACTIONS (3)
  - ARTHRALGIA [None]
  - DRY MOUTH [None]
  - GAIT DISTURBANCE [None]
